FAERS Safety Report 19981227 (Version 1)
Quarter: 2021Q4

REPORT INFORMATION
  Report Type: Spontaneous
  Country: ES (occurrence: ES)
  Receive Date: 20211021
  Receipt Date: 20211021
  Transmission Date: 20220303
  Serious: Yes (Life-Threatening, Hospitalization)
  Sender: FDA-Public Use
  Company Number: None

PATIENT
  Age: 47 Year
  Sex: Female

DRUGS (5)
  1. VENLAFAXINE HCL [Suspect]
     Active Substance: VENLAFAXINE HYDROCHLORIDE
     Dosage: 7500 MG, SINGLE
     Route: 048
     Dates: start: 20210929, end: 20210929
  2. CLONAZEPAM [Suspect]
     Active Substance: CLONAZEPAM
     Dosage: 360 MG, SINGLE
     Route: 048
     Dates: start: 20210929, end: 20210929
  3. TIANEPTINE SODIUM [Suspect]
     Active Substance: TIANEPTINE SODIUM
     Dosage: 875 MG, SINGLE
     Route: 048
     Dates: start: 20210929, end: 20210929
  4. VENLAFAXINE [Concomitant]
     Active Substance: VENLAFAXINE HYDROCHLORIDE
     Indication: Borderline personality disorder
     Dosage: 300 MG, 1X/DAY,  2 CAPSULES IN THE MORNING
     Route: 048
     Dates: start: 20150907
  5. TIANEPTINE SODIUM [Concomitant]
     Active Substance: TIANEPTINE SODIUM
     Indication: Borderline personality disorder
     Dosage: 12.5 MG, 3X/DAY, 1 TABLET EVERY 8 HOURS
     Route: 048
     Dates: start: 20191206

REACTIONS (4)
  - Overdose [Recovering/Resolving]
  - Suicide attempt [Recovering/Resolving]
  - Respiratory failure [Recovered/Resolved]
  - Depressed level of consciousness [Recovering/Resolving]

NARRATIVE: CASE EVENT DATE: 20210929
